FAERS Safety Report 12377072 (Version 1)
Quarter: 2016Q2

REPORT INFORMATION
  Report Type: Report from Study
  Country: US (occurrence: US)
  Receive Date: 20160517
  Receipt Date: 20160517
  Transmission Date: 20160815
  Serious: No
  Sender: FDA-Public Use
  Company Number: US-MALLINCKRODT-T201503620

PATIENT
  Age: 40 Year
  Sex: Male

DRUGS (6)
  1. REPOSITORY CORTICOTROPIN INJECTION [Suspect]
     Active Substance: CORTICOTROPIN
     Dosage: 80 UNITS TWICE WKLY
     Route: 030
     Dates: start: 20150202
  2. POTASSIUM [Suspect]
     Active Substance: POTASSIUM
  3. LASIX [Suspect]
     Active Substance: FUROSEMIDE
  4. REPOSITORY CORTICOTROPIN INJECTION [Suspect]
     Active Substance: CORTICOTROPIN
     Indication: GLOMERULONEPHRITIS MEMBRANOUS
     Dosage: 80 UNITS TWICE WKLY
     Route: 058
     Dates: start: 20150202
  5. MAGNESIUM [Suspect]
     Active Substance: MAGNESIUM
  6. LISINOPRIL. [Suspect]
     Active Substance: LISINOPRIL

REACTIONS (10)
  - Libido decreased [Unknown]
  - Throat tightness [Recovered/Resolved]
  - Weight increased [Not Recovered/Not Resolved]
  - Drug ineffective [Not Recovered/Not Resolved]
  - Eye swelling [Recovered/Resolved]
  - Injection site bruising [Not Recovered/Not Resolved]
  - Peripheral swelling [Not Recovered/Not Resolved]
  - Weight loss poor [Not Recovered/Not Resolved]
  - Increased appetite [Unknown]
  - Urine abnormality [Unknown]

NARRATIVE: CASE EVENT DATE: 20150911
